FAERS Safety Report 16768231 (Version 2)
Quarter: 2019Q3

REPORT INFORMATION
  Report Type: Report from Study
  Country: BR (occurrence: BR)
  Receive Date: 20190903
  Receipt Date: 20190906
  Transmission Date: 20191005
  Serious: Yes (Death, Hospitalization)
  Sender: FDA-Public Use
  Company Number: PHHY2019BR204230

PATIENT
  Sex: Female
  Weight: 37 kg

DRUGS (1)
  1. DIOVAN HCT [Suspect]
     Active Substance: HYDROCHLOROTHIAZIDE\VALSARTAN
     Indication: PRODUCT USED FOR UNKNOWN INDICATION
     Dosage: (HYDROCHLOROTHIAZIDE 15 MG, VALSARTAN 160 MG)
     Route: 065

REACTIONS (6)
  - Diabetes mellitus [Fatal]
  - Multiple organ dysfunction syndrome [Fatal]
  - Lung infection [Fatal]
  - Bradycardia [Fatal]
  - Cerebrovascular accident [Fatal]
  - Hypertensive crisis [Unknown]
